FAERS Safety Report 7216730-2 (Version None)
Quarter: 2011Q1

REPORT INFORMATION
  Report Type: 
  Country: None (occurrence: None)
  Receive Date: 20110110
  Receipt Date: 20101229
  Transmission Date: 20110831
  Serious: No
  Sender: FDA-Public Use
  Company Number: US-BIOGENIDEC-2011BI000541

PATIENT
  Sex: Female

DRUGS (4)
  1. AVONEX [Concomitant]
     Indication: MULTIPLE SCLEROSIS
     Route: 030
     Dates: start: 19980501
  2. VITAMIN D [Concomitant]
  3. TYSABRI [Suspect]
     Indication: MULTIPLE SCLEROSIS
     Route: 042
     Dates: start: 20101215
  4. BLOOD PRESSURE PILLS (NOS) [Concomitant]

REACTIONS (7)
  - DECREASED APPETITE [None]
  - MUSCULAR WEAKNESS [None]
  - COGNITIVE DISORDER [None]
  - THERMAL BURN [None]
  - STRESS [None]
  - HYPOAESTHESIA [None]
  - CHILLS [None]
